FAERS Safety Report 7665833-7 (Version None)
Quarter: 2011Q3

REPORT INFORMATION
  Report Type: 
  Country: None (occurrence: None)
  Receive Date: 20110806
  Receipt Date: 20110421
  Transmission Date: 20111222
  Serious: No
  Sender: FDA-Public Use
  Company Number: US-ABBOTT-11P-163-0720712-00

PATIENT
  Sex: Male
  Weight: 104.42 kg

DRUGS (1)
  1. NIASPAN [Suspect]
     Indication: BLOOD CHOLESTEROL INCREASED
     Dosage: AT BEDTIME
     Route: 048

REACTIONS (5)
  - FEELING HOT [None]
  - URTICARIA [None]
  - FLUSHING [None]
  - ERYTHEMA [None]
  - PRURITUS [None]
